FAERS Safety Report 7069006-0 (Version None)
Quarter: 2010Q4

REPORT INFORMATION
  Report Type: 
  Country: None (occurrence: None)
  Receive Date: 20101020
  Receipt Date: 20101007
  Transmission Date: 20110411
  Serious: Yes (Disabling)
  Sender: FDA-Public Use
  Company Number: 2010MA003434

PATIENT
  Age: 41 Year
  Sex: Female

DRUGS (3)
  1. RISPERIDONE [Suspect]
     Indication: SCHIZOPHRENIA, PARANOID TYPE
     Dosage: 2 MG;QD
  2. TRIHEXYPHENIDYL HCL [Concomitant]
  3. PREV MEDS [Concomitant]

REACTIONS (1)
  - PARKINSONISM [None]
